FAERS Safety Report 24777013 (Version 1)
Quarter: 2024Q4

REPORT INFORMATION
  Report Type: Spontaneous
  Country: LV (occurrence: LV)
  Receive Date: 20241226
  Receipt Date: 20241226
  Transmission Date: 20250115
  Serious: Yes (Other)
  Sender: RANBAXY
  Company Number: LV-SUN PHARMACEUTICAL INDUSTRIES LTD-2024R1-486106

PATIENT
  Age: 69 Year
  Sex: Female

DRUGS (3)
  1. CARBAMAZEPINE [Suspect]
     Active Substance: CARBAMAZEPINE
     Indication: Glossopharyngeal neuralgia
     Dosage: UNK
     Route: 065
  2. GABAPENTIN [Suspect]
     Active Substance: GABAPENTIN
     Indication: Glossopharyngeal neuralgia
     Dosage: UNK
     Route: 065
  3. BACLOFEN [Suspect]
     Active Substance: BACLOFEN
     Indication: Glossopharyngeal neuralgia
     Dosage: UNK
     Route: 065

REACTIONS (1)
  - Treatment failure [Unknown]
